FAERS Safety Report 25258754 (Version 1)
Quarter: 2025Q2

REPORT INFORMATION
  Report Type: Spontaneous
  Country: US (occurrence: US)
  Receive Date: 20250501
  Receipt Date: 20250501
  Transmission Date: 20250717
  Serious: Yes (Death, Other)
  Sender: AMGEN
  Company Number: US-KYOWAKIRIN-2023AKK006848

PATIENT

DRUGS (1)
  1. DARBEPOETIN ALFA [Suspect]
     Active Substance: DARBEPOETIN ALFA
     Indication: Anaemia
     Route: 065

REACTIONS (11)
  - Pneumonia aspiration [Fatal]
  - Cardiac arrest [Fatal]
  - Myocardial infarction [Fatal]
  - Acute myocardial infarction [Fatal]
  - Neoplasm [Unknown]
  - Neoplasm [Unknown]
  - Alanine aminotransferase increased [Unknown]
  - Aspartate aminotransferase increased [Unknown]
  - Transaminases increased [Unknown]
  - Hepatic enzyme increased [Unknown]
  - Liver function test abnormal [Unknown]
